FAERS Safety Report 17640503 (Version 1)
Quarter: 2020Q2

REPORT INFORMATION
  Report Type: Spontaneous
  Country: US (occurrence: US)
  Receive Date: 20200408
  Receipt Date: 20200408
  Transmission Date: 20200713
  Serious: Yes (Other)
  Sender: FDA-Public Use
  Company Number: US-AUROBINDO-AUR-APL-2020-016511

PATIENT
  Age: 18 Year
  Sex: Male

DRUGS (2)
  1. CLOZAPINE. [Suspect]
     Active Substance: CLOZAPINE
     Indication: PSYCHOTIC DISORDER
     Dosage: 350 MILLIGRAM, ONCE A DAY
     Route: 048
  2. CLOZAPINE. [Interacting]
     Active Substance: CLOZAPINE
     Dosage: TITRATED TO 350 MG
     Route: 048

REACTIONS (6)
  - Psychotic disorder [Recovered/Resolved]
  - Drug level changed [Recovered/Resolved]
  - Drug interaction [Recovered/Resolved]
  - Drooling [Unknown]
  - Therapeutic product effect decreased [Recovered/Resolved]
  - Salivary hypersecretion [Unknown]
